FAERS Safety Report 9030138 (Version 1)
Quarter: 2013Q1

REPORT INFORMATION
  Report Type: Spontaneous
  Country: GB (occurrence: GB)
  Receive Date: 20130125
  Receipt Date: 20130125
  Transmission Date: 20140127
  Serious: Yes (Life-Threatening)
  Sender: FDA-Public Use
  Company Number: GB-AMGEN-GBRSP2013004865

PATIENT
  Age: 68 Year
  Sex: Male
  Weight: 79 kg

DRUGS (13)
  1. ENBREL [Suspect]
     Indication: RHEUMATOID ARTHRITIS
     Dosage: 50 MG, UNK
     Route: 051
     Dates: start: 201011, end: 201211
  2. METHOTREXATE [Concomitant]
     Dosage: UNK
  3. SULPHASALAZINE [Concomitant]
     Dosage: UNK
  4. IBUPROFEN [Concomitant]
     Dosage: UNK
  5. AMITRIPTYLINE [Concomitant]
     Dosage: UNK
  6. ACETYLSALICYLIC ACID [Concomitant]
     Dosage: UNK
  7. BENDROFLUAZIDE [Concomitant]
     Dosage: UNK
  8. ROSUVASTATIN [Concomitant]
     Dosage: UNK
  9. OMEPRAZOLE [Concomitant]
     Dosage: UNK
  10. FOLIC ACID [Concomitant]
     Dosage: UNK
  11. AMLODIPINE [Concomitant]
     Dosage: UNK
  12. TRAMADOL HYDROCHLORIDE [Concomitant]
     Dosage: UNK
  13. DIPYRIDAMOLE [Concomitant]
     Dosage: UNK

REACTIONS (1)
  - Non-small cell lung cancer stage IV [Unknown]
